FAERS Safety Report 9580962 (Version 2)
Quarter: 2013Q4

REPORT INFORMATION
  Report Type: Spontaneous
  Country: AR (occurrence: AR)
  Receive Date: 20131002
  Receipt Date: 20131002
  Transmission Date: 20140711
  Serious: Yes (Other)
  Sender: FDA-Public Use
  Company Number: AR-B.I. PHARMACEUTICALS,INC./RIDGEFIELD-2013-RA-00090RA

PATIENT
  Age: 52 Year
  Sex: Female

DRUGS (4)
  1. MICARDIS [Suspect]
     Indication: CARDIAC FAILURE
     Dosage: 40 MG
     Route: 048
     Dates: end: 20130415
  2. CARVEDILOL [Concomitant]
  3. T4 [Concomitant]
  4. OMEPRAZOLE [Concomitant]

REACTIONS (3)
  - Vena cava thrombosis [Not Recovered/Not Resolved]
  - Pruritus [Not Recovered/Not Resolved]
  - Angioedema [Not Recovered/Not Resolved]
